FAERS Safety Report 9770126 (Version 2)
Quarter: 2013Q4

REPORT INFORMATION
  Report Type: Spontaneous
  Country: US (occurrence: US)
  Receive Date: 20131218
  Receipt Date: 20131218
  Transmission Date: 20140711
  Serious: No
  Sender: FDA-Public Use
  Company Number: US-VERTEX PHARMACEUTICALS INC-AE-2011-001043

PATIENT
  Age: 43 Year
  Sex: Female
  Weight: 91.82 kg

DRUGS (7)
  1. INCIVEK [Suspect]
     Indication: HEPATITIS C
     Route: 048
     Dates: start: 20110819
  2. PEGASUS [Concomitant]
     Indication: HEPATITIS C
     Route: 058
     Dates: start: 20110819
  3. RIBAVIRIN [Concomitant]
     Indication: HEPATITIS C
     Route: 048
     Dates: start: 20110819
  4. LACTULOSE [Concomitant]
     Indication: CONSTIPATION
  5. LEVOTHYROXINE [Concomitant]
     Route: 048
  6. PREVACID [Concomitant]
     Route: 048
  7. OXYCODONE [Concomitant]
     Route: 048

REACTIONS (3)
  - Rash papular [Not Recovered/Not Resolved]
  - Vulvovaginal pruritus [Not Recovered/Not Resolved]
  - Nausea [Not Recovered/Not Resolved]
